FAERS Safety Report 8392726-2 (Version None)
Quarter: 2012Q2

REPORT INFORMATION
  Report Type: 
  Country: None (occurrence: None)
  Receive Date: 20120529
  Receipt Date: 20120517
  Transmission Date: 20120825
  Serious: Yes (Hospitalization)
  Sender: FDA-Public Use
  Company Number: JP-ELI_LILLY_AND_COMPANY-JP201205006689

PATIENT
  Age: 14 Year
  Sex: Female

DRUGS (1)
  1. HUMATROPE [Suspect]
     Indication: BODY HEIGHT BELOW NORMAL
     Route: 058

REACTIONS (3)
  - RENOVASCULAR HYPERTENSION [None]
  - HYDROCEPHALUS [None]
  - POSTERIOR REVERSIBLE ENCEPHALOPATHY SYNDROME [None]
